FAERS Safety Report 19943526 (Version 1)
Quarter: 2021Q4

REPORT INFORMATION
  Report Type: Spontaneous
  Country: US (occurrence: US)
  Receive Date: 20211009
  Receipt Date: 20211009
  Transmission Date: 20220303
  Serious: Yes (Other)
  Sender: FDA-Public Use
  Company Number: None

PATIENT
  Age: 42 Year
  Sex: Female
  Weight: 60.75 kg

DRUGS (7)
  1. FLUCONAZOLE [Suspect]
     Active Substance: FLUCONAZOLE
     Indication: Fungal skin infection
     Dosage: ?          QUANTITY:1 TABLET(S);OTHER FREQUENCY:WEEK;
     Route: 048
  2. INSULIN NOS [Concomitant]
     Active Substance: INSULIN NOS
  3. ZYRTEC [Concomitant]
     Active Substance: CETIRIZINE HYDROCHLORIDE
  4. DEVICE\INSULIN NOS [Concomitant]
     Active Substance: DEVICE\INSULIN NOS
  5. ATORVASTATIN [Concomitant]
     Active Substance: ATORVASTATIN
  6. CGM [Concomitant]
  7. VITAMIN D3 [Concomitant]
     Active Substance: CHOLECALCIFEROL

REACTIONS (1)
  - Blood glucose increased [None]

NARRATIVE: CASE EVENT DATE: 20211003
